FAERS Safety Report 11789920 (Version 8)
Quarter: 2019Q1

REPORT INFORMATION
  Report Type: Report from Study
  Country: JP (occurrence: JP)
  Receive Date: 20151201
  Receipt Date: 20190213
  Transmission Date: 20190417
  Serious: Yes (Hospitalization, Other)
  Sender: FDA-Public Use
  Company Number: JP-ASTELLAS-2009JP000641

PATIENT
  Age: 26 Year
  Sex: Female

DRUGS (124)
  1. MICARDIS [Concomitant]
     Active Substance: TELMISARTAN
     Route: 048
  2. IMURAN [Concomitant]
     Active Substance: AZATHIOPRINE
     Indication: LUPUS NEPHRITIS
     Route: 048
     Dates: start: 20120320, end: 20120528
  3. FERROMIA [Concomitant]
     Active Substance: SODIUM FERROUS CITRATE
     Indication: IRON DEFICIENCY ANAEMIA
     Route: 048
     Dates: start: 20080526, end: 20080728
  4. PATANOL [Concomitant]
     Active Substance: OLOPATADINE HYDROCHLORIDE
     Dosage: UNK UNK, 4 TIMES DAILY
     Route: 047
     Dates: start: 20131125, end: 20140427
  5. ALLEGRA [Concomitant]
     Active Substance: FEXOFENADINE HYDROCHLORIDE
     Route: 048
     Dates: start: 20120228, end: 20120319
  6. LOXONIN [Concomitant]
     Active Substance: LOXOPROFEN SODIUM
     Indication: BRONCHITIS
     Route: 048
     Dates: start: 20100406, end: 20100409
  7. MUCOSTA [Concomitant]
     Active Substance: REBAMIPIDE
     Indication: HERPES ZOSTER
     Route: 048
     Dates: start: 20150120, end: 20150127
  8. PROCYLIN [Concomitant]
     Active Substance: BERAPROST SODIUM
     Indication: PULMONARY HYPERTENSION
     Dosage: 60 UG, ONCE DAILY
     Route: 048
     Dates: start: 20100513
  9. TOMIRON [Concomitant]
     Active Substance: CEFTERAM PIVOXIL
     Indication: BRONCHITIS
     Route: 048
     Dates: start: 20091228, end: 20100103
  10. ATELEC [Concomitant]
     Active Substance: CILNIDIPINE
     Indication: PRODUCT USED FOR UNKNOWN INDICATION
     Route: 048
     Dates: start: 20130128, end: 20130825
  11. TACROLIMUS. [Suspect]
     Active Substance: TACROLIMUS
     Route: 048
     Dates: start: 20100617, end: 20100726
  12. PREDONINE [Suspect]
     Active Substance: PREDNISOLONE
     Route: 048
     Dates: start: 20100713, end: 20100726
  13. PREDONINE [Suspect]
     Active Substance: PREDNISOLONE
     Route: 048
     Dates: start: 20100928, end: 20101013
  14. PREDONINE [Suspect]
     Active Substance: PREDNISOLONE
     Route: 048
     Dates: start: 20110816, end: 20120924
  15. PREDONINE [Suspect]
     Active Substance: PREDNISOLONE
     Route: 048
     Dates: start: 20130423, end: 20130728
  16. CELLCEPT [Suspect]
     Active Substance: MYCOPHENOLATE MOFETIL\MYCOPHENOLATE MOFETIL HYDROCHLORIDE
     Indication: LUPUS NEPHRITIS
     Route: 048
     Dates: start: 20100511, end: 20111208
  17. CELLCEPT [Suspect]
     Active Substance: MYCOPHENOLATE MOFETIL\MYCOPHENOLATE MOFETIL HYDROCHLORIDE
     Route: 048
     Dates: start: 20160301
  18. HUSTAZOL [CLOPERASTINE HYDROCHLORIDE] [Concomitant]
     Active Substance: CLOPERASTINE HYDROCHLORIDE
     Indication: BRONCHITIS
     Route: 048
     Dates: start: 20100406, end: 20100418
  19. RASILEZ [Concomitant]
     Active Substance: ALISKIREN
     Indication: PRODUCT USED FOR UNKNOWN INDICATION
     Dosage: 150-300 MG/DAY
     Route: 048
     Dates: start: 20110329
  20. RASILEZ [Concomitant]
     Active Substance: ALISKIREN
     Route: 048
     Dates: start: 20130708, end: 20150629
  21. ARASENA A [Concomitant]
     Active Substance: VIDARABINE
     Indication: HERPES ZOSTER
     Dosage: SEVERAL TIMES/DAY
     Route: 061
     Dates: start: 20111208, end: 20111213
  22. ARASENA A [Concomitant]
     Active Substance: VIDARABINE
     Indication: HERPES ZOSTER
     Dosage: ADEQUATE DOSE, UNKNOWN FREQ.
     Route: 061
     Dates: start: 20131217, end: 20131224
  23. MICARDIS [Concomitant]
     Active Substance: TELMISARTAN
     Dosage: 20-40 MG/DAY
     Route: 048
  24. GASTER [Concomitant]
     Active Substance: FAMOTIDINE
     Indication: PROPHYLAXIS
     Route: 048
  25. IMURAN [Concomitant]
     Active Substance: AZATHIOPRINE
     Route: 048
     Dates: start: 20120529, end: 20120618
  26. LYRICA [Concomitant]
     Active Substance: PREGABALIN
     Indication: HERPES ZOSTER
     Route: 048
     Dates: start: 20111213, end: 20111214
  27. ACECOL [Concomitant]
     Active Substance: TEMOCAPRIL HYDROCHLORIDE
     Indication: PRODUCT USED FOR UNKNOWN INDICATION
     Route: 048
  28. ALLEGRA [Concomitant]
     Active Substance: FEXOFENADINE HYDROCHLORIDE
     Indication: CONJUNCTIVITIS ALLERGIC
     Route: 048
     Dates: start: 20090330, end: 20090427
  29. ALLEGRA [Concomitant]
     Active Substance: FEXOFENADINE HYDROCHLORIDE
     Indication: CONJUNCTIVITIS ALLERGIC
     Route: 048
     Dates: start: 20100809, end: 20100927
  30. LOXONIN [Concomitant]
     Active Substance: LOXOPROFEN SODIUM
     Indication: GINGIVITIS
     Route: 048
     Dates: start: 20090928, end: 20091004
  31. LOXONIN [Concomitant]
     Active Substance: LOXOPROFEN SODIUM
     Indication: HERPES ZOSTER
     Route: 048
     Dates: start: 20131217, end: 20140106
  32. DEPAS (ETIZOLAM) [Concomitant]
     Active Substance: ETIZOLAM
     Route: 048
     Dates: start: 20160405, end: 20180128
  33. TACROLIMUS. [Suspect]
     Active Substance: TACROLIMUS
     Route: 048
     Dates: start: 20100605, end: 20100616
  34. TACROLIMUS. [Suspect]
     Active Substance: TACROLIMUS
     Route: 048
     Dates: start: 20111227, end: 20170219
  35. PREDONINE [Suspect]
     Active Substance: PREDNISOLONE
     Indication: LUPUS NEPHRITIS
     Route: 048
  36. PREDONINE [Suspect]
     Active Substance: PREDNISOLONE
     Route: 048
     Dates: start: 20080428, end: 20100510
  37. PREDONINE [Suspect]
     Active Substance: PREDNISOLONE
     Route: 048
     Dates: start: 20100618, end: 20100627
  38. PREDONINE [Suspect]
     Active Substance: PREDNISOLONE
     Route: 048
     Dates: start: 20100824, end: 20100927
  39. PREDONINE [Suspect]
     Active Substance: PREDNISOLONE
     Route: 048
     Dates: start: 20150427
  40. LIPITOR [Concomitant]
     Active Substance: ATORVASTATIN CALCIUM
     Indication: PROPHYLAXIS
     Route: 048
  41. VALTREX [Concomitant]
     Active Substance: VALACYCLOVIR HYDROCHLORIDE
     Route: 048
     Dates: start: 20150120, end: 20150124
  42. VICCLOX [Concomitant]
     Active Substance: ACYCLOVIR SODIUM
     Indication: HERPES ZOSTER
     Route: 065
     Dates: start: 20111212, end: 20111219
  43. WARFARIN [Concomitant]
     Active Substance: WARFARIN
     Indication: PROPHYLAXIS
     Dosage: 3.5-5 MG/DAY
     Route: 048
  44. WARFARIN [Concomitant]
     Active Substance: WARFARIN
     Dosage: 4-5 MG/DAY
     Route: 048
  45. WARFARIN [Concomitant]
     Active Substance: WARFARIN
     Dosage: 3.5-5 MG/DAY
     Route: 048
     Dates: start: 20100430
  46. WARFARIN [Concomitant]
     Active Substance: WARFARIN
     Dosage: 2.5-5 MG/DAY
     Route: 048
  47. FERROMIA [Concomitant]
     Active Substance: SODIUM FERROUS CITRATE
     Route: 048
     Dates: start: 20101115, end: 20110117
  48. MEVALOTIN [Concomitant]
     Active Substance: PRAVASTATIN SODIUM
     Indication: PRODUCT USED FOR UNKNOWN INDICATION
     Route: 048
  49. FLOMOX                             /01418603/ [Concomitant]
     Active Substance: CEFCAPENE PIVOXIL HYDROCHLORIDE
     Indication: TOOTHACHE
     Route: 048
     Dates: start: 20131125, end: 20131129
  50. LOXONIN [Concomitant]
     Active Substance: LOXOPROFEN SODIUM
     Indication: HERPES ZOSTER
     Route: 048
     Dates: start: 20111208, end: 20111221
  51. TAMIFLU [Concomitant]
     Active Substance: OSELTAMIVIR PHOSPHATE
     Indication: INFLUENZA
     Route: 048
     Dates: start: 20091212, end: 20091216
  52. MUCOSTA [Concomitant]
     Active Substance: REBAMIPIDE
     Indication: HERPES ZOSTER
     Route: 048
     Dates: start: 20131219, end: 20140106
  53. PL [Concomitant]
     Active Substance: ACETAMINOPHEN\CAFFEINE\PROMETHAZINE\SALICYLAMIDE
     Indication: NASOPHARYNGITIS
     Dosage: UNK UNK, UNKNOWN FREQ.
     Route: 065
  54. RESPLEN [Concomitant]
     Active Substance: EPRAZINONE
     Indication: BRONCHITIS
     Route: 048
     Dates: start: 20091221, end: 20091227
  55. PREDONINE [Suspect]
     Active Substance: PREDNISOLONE
     Route: 048
     Dates: start: 20100604, end: 20100617
  56. PREDONINE [Suspect]
     Active Substance: PREDNISOLONE
     Route: 048
     Dates: start: 20101014, end: 20101115
  57. PREDONINE [Suspect]
     Active Substance: PREDNISOLONE
     Route: 048
     Dates: start: 20120925, end: 20130128
  58. LIPITOR [Concomitant]
     Active Substance: ATORVASTATIN CALCIUM
     Indication: HYPERLIPIDAEMIA
     Route: 048
     Dates: start: 20110222
  59. IMURAN [Concomitant]
     Active Substance: AZATHIOPRINE
     Route: 048
     Dates: start: 20120619, end: 20131217
  60. BUFFERIN [Concomitant]
     Active Substance: ASPIRIN
     Indication: PROPHYLAXIS
     Route: 048
  61. WARFARIN [Concomitant]
     Active Substance: WARFARIN
     Route: 048
  62. FLOMOX                             /01418603/ [Concomitant]
     Active Substance: CEFCAPENE PIVOXIL HYDROCHLORIDE
     Indication: GINGIVITIS
     Route: 048
     Dates: start: 20090928, end: 20091004
  63. FLOMOX                             /01418603/ [Concomitant]
     Active Substance: CEFCAPENE PIVOXIL HYDROCHLORIDE
     Indication: BRONCHITIS
     Route: 048
     Dates: start: 20100406, end: 20100409
  64. HUSCODE [Concomitant]
     Active Substance: CHLORPHENIRAMINE MALEATE\DIHYDROCODEINE PHOSPHATE\METHYLEPHEDRINE HYDROCHLORIDE, DL-
     Indication: INFLUENZA
     Route: 048
     Dates: start: 20071211, end: 20071227
  65. BUSCOPAN [Concomitant]
     Active Substance: BUTYLSCOPOLAMINE BROMIDE
     Indication: GASTROENTERITIS
     Route: 048
     Dates: start: 20091228, end: 20100103
  66. BAKTAR [Concomitant]
     Active Substance: SULFAMETHOXAZOLE\TRIMETHOPRIM
     Indication: PROPHYLAXIS
     Route: 048
     Dates: start: 20100514, end: 20101018
  67. HIRNAMIN [Concomitant]
     Active Substance: LEVOMEPROMAZINE
     Indication: MANIA
     Route: 048
     Dates: start: 20100525, end: 20100809
  68. ATELEC [Concomitant]
     Active Substance: CILNIDIPINE
     Route: 048
     Dates: start: 20130826, end: 20140223
  69. TACROLIMUS. [Suspect]
     Active Substance: TACROLIMUS
     Indication: LUPUS NEPHRITIS
     Route: 048
     Dates: start: 20070528, end: 20100604
  70. PREDONINE [Suspect]
     Active Substance: PREDNISOLONE
     Route: 048
     Dates: start: 20100511, end: 20100603
  71. PREDONINE [Suspect]
     Active Substance: PREDNISOLONE
     Route: 048
     Dates: start: 20100727, end: 20100809
  72. CELLCEPT [Suspect]
     Active Substance: MYCOPHENOLATE MOFETIL\MYCOPHENOLATE MOFETIL HYDROCHLORIDE
     Route: 048
     Dates: start: 20111227, end: 20120319
  73. RASILEZ [Concomitant]
     Active Substance: ALISKIREN
     Route: 048
  74. BUFFERIN [Concomitant]
     Active Substance: ASPIRIN
     Route: 048
     Dates: start: 20100430
  75. WARFARIN [Concomitant]
     Active Substance: WARFARIN
     Route: 048
  76. FERROMIA [Concomitant]
     Active Substance: SODIUM FERROUS CITRATE
     Route: 048
     Dates: start: 20130708, end: 20131124
  77. ALLEGRA [Concomitant]
     Active Substance: FEXOFENADINE HYDROCHLORIDE
     Route: 048
     Dates: start: 20110329, end: 20110425
  78. LOXONIN [Concomitant]
     Active Substance: LOXOPROFEN SODIUM
     Indication: GASTROENTERITIS
     Route: 048
     Dates: start: 20091221, end: 20091227
  79. HUSCODE [Concomitant]
     Active Substance: CHLORPHENIRAMINE MALEATE\DIHYDROCODEINE PHOSPHATE\METHYLEPHEDRINE HYDROCHLORIDE, DL-
     Route: 048
     Dates: start: 20091212, end: 20091216
  80. MUCOSTA [Concomitant]
     Active Substance: REBAMIPIDE
     Indication: GASTROENTERITIS
     Route: 048
     Dates: start: 20091228, end: 20100103
  81. WYPAX [Concomitant]
     Active Substance: LORAZEPAM
     Indication: MANIA
     Route: 048
     Dates: start: 20100706, end: 20100921
  82. MUCOSOLVAN [Concomitant]
     Active Substance: AMBROXOL HYDROCHLORIDE
     Indication: BRONCHITIS
     Route: 048
     Dates: start: 20071211, end: 20071218
  83. TOMIRON [Concomitant]
     Active Substance: CEFTERAM PIVOXIL
     Indication: TOOTHACHE
     Route: 048
     Dates: start: 20140331, end: 20140404
  84. ISODINE [Concomitant]
     Active Substance: POVIDONE-IODINE
     Indication: TOOTHACHE
     Dosage: ADEQUATE DOSE, UNKNOWN FREQ.
     Route: 061
     Dates: start: 20131125, end: 20131216
  85. PREDONINE [Suspect]
     Active Substance: PREDNISOLONE
     Route: 048
     Dates: start: 20110621, end: 20110815
  86. HALCION [Concomitant]
     Active Substance: TRIAZOLAM
     Indication: INSOMNIA
     Dosage: 0.25 MG, ONCE DAILY
     Route: 048
     Dates: start: 20111208
  87. MICARDIS [Concomitant]
     Active Substance: TELMISARTAN
     Indication: PRODUCT USED FOR UNKNOWN INDICATION
     Route: 048
  88. SULBACILLIN [Concomitant]
     Active Substance: AMPICILLIN SODIUM\SULBACTAM SODIUM
     Indication: HERPES ZOSTER
     Route: 065
     Dates: start: 20111215, end: 20111219
  89. FERROMIA [Concomitant]
     Active Substance: SODIUM FERROUS CITRATE
     Route: 048
     Dates: start: 20090824, end: 20091130
  90. FERROMIA [Concomitant]
     Active Substance: SODIUM FERROUS CITRATE
     Route: 048
     Dates: start: 20110816, end: 20111128
  91. PATANOL [Concomitant]
     Active Substance: OLOPATADINE HYDROCHLORIDE
     Indication: CONJUNCTIVITIS ALLERGIC
     Dosage: 1-2 DROPS AT A TIME, 4 TIMES DAILY
     Route: 047
     Dates: start: 20090223, end: 20090427
  92. PATANOL [Concomitant]
     Active Substance: OLOPATADINE HYDROCHLORIDE
     Dosage: 1-2 DROPS AT A TIME, 4 TIMES DAILY
     Route: 047
     Dates: start: 20120228, end: 20120319
  93. LOXONIN [Concomitant]
     Active Substance: LOXOPROFEN SODIUM
     Indication: TOOTHACHE
     Route: 048
     Dates: start: 20131125, end: 20131204
  94. JZOLOFT [Concomitant]
     Active Substance: SERTRALINE HYDROCHLORIDE
     Indication: MANIA
     Dosage: 25-50 MG/DAY
     Route: 048
     Dates: start: 20100706, end: 20101214
  95. ROCEPHIN [Concomitant]
     Active Substance: CEFTRIAXONE SODIUM
     Indication: BRONCHITIS
     Route: 048
     Dates: start: 20071220, end: 20071221
  96. TACROLIMUS. [Suspect]
     Active Substance: TACROLIMUS
     Route: 048
     Dates: start: 20170227
  97. PREDONINE [Suspect]
     Active Substance: PREDNISOLONE
     Route: 048
     Dates: start: 20080324, end: 20080428
  98. PREDONINE [Suspect]
     Active Substance: PREDNISOLONE
     Route: 048
     Dates: start: 20100810, end: 20100823
  99. PREDONINE [Suspect]
     Active Substance: PREDNISOLONE
     Route: 048
     Dates: start: 20130729, end: 20150426
  100. FLUMETHOLON [Concomitant]
     Active Substance: FLUOROMETHOLONE
     Indication: CONJUNCTIVITIS ALLERGIC
     Dosage: SEVERAL INSTILLATIONS/DAY
     Route: 047
     Dates: start: 20100809, end: 20100823
  101. TAKEPRON [Concomitant]
     Active Substance: LANSOPRAZOLE
     Indication: PROPHYLAXIS
     Route: 048
     Dates: start: 20110118, end: 20170424
  102. RASILEZ [Concomitant]
     Active Substance: ALISKIREN
     Route: 048
     Dates: start: 20160329
  103. VALTREX [Concomitant]
     Active Substance: VALACYCLOVIR HYDROCHLORIDE
     Indication: HERPES ZOSTER
     Route: 048
     Dates: start: 20131217, end: 20131223
  104. IMURAN [Concomitant]
     Active Substance: AZATHIOPRINE
     Route: 048
     Dates: start: 20140127, end: 20160229
  105. GENTACIN [Concomitant]
     Active Substance: GENTAMICIN SULFATE
     Indication: HERPES ZOSTER
     Dosage: UNK UNK, ONCE OR TWICE/DAY
     Route: 061
     Dates: start: 20111213, end: 20111219
  106. WARFARIN [Concomitant]
     Active Substance: WARFARIN
     Dosage: 3.5-5 MG/DAY
     Route: 048
  107. ALLEGRA [Concomitant]
     Active Substance: FEXOFENADINE HYDROCHLORIDE
     Route: 048
     Dates: start: 20140224, end: 20140427
  108. LOXONIN [Concomitant]
     Active Substance: LOXOPROFEN SODIUM
     Route: 048
     Dates: start: 20150120, end: 20150127
  109. DEPAS (ETIZOLAM) [Concomitant]
     Active Substance: ETIZOLAM
     Indication: INSOMNIA
     Route: 048
     Dates: start: 20100519, end: 20120531
  110. ZYPREXA [Concomitant]
     Active Substance: OLANZAPINE
     Indication: MANIA
     Route: 048
     Dates: start: 20100601, end: 20100611
  111. PREDONINE [Suspect]
     Active Substance: PREDNISOLONE
     Route: 048
     Dates: start: 20100628, end: 20100712
  112. PREDONINE [Suspect]
     Active Substance: PREDNISOLONE
     Route: 048
     Dates: start: 20130129, end: 20130422
  113. MUCODYNE [Concomitant]
     Active Substance: CARBOCYSTEINE
     Indication: BRONCHITIS
     Route: 048
     Dates: start: 20100412, end: 20100418
  114. VALTREX [Concomitant]
     Active Substance: VALACYCLOVIR HYDROCHLORIDE
     Indication: HERPES ZOSTER
     Route: 048
     Dates: start: 20111208, end: 20111212
  115. MAGLAX [Concomitant]
     Active Substance: MAGNESIUM OXIDE
     Indication: PRODUCT USED FOR UNKNOWN INDICATION
     Route: 048
  116. FERROMIA [Concomitant]
     Active Substance: SODIUM FERROUS CITRATE
     Route: 048
     Dates: start: 20151027, end: 20160328
  117. ITRIZOLE [Concomitant]
     Active Substance: ITRACONAZOLE
     Indication: PROPHYLAXIS
     Route: 048
     Dates: start: 20100514, end: 20100726
  118. PROCYLIN [Concomitant]
     Active Substance: BERAPROST SODIUM
     Indication: PROPHYLAXIS
  119. LODOPINE [Concomitant]
     Active Substance: ZOTEPINE
     Indication: MANIA
     Route: 048
     Dates: start: 20100525, end: 20100726
  120. BONALON [Concomitant]
     Active Substance: ALENDRONATE SODIUM
     Indication: PROPHYLAXIS
     Route: 048
     Dates: start: 20100528, end: 20150831
  121. SP TROCHES [Concomitant]
     Active Substance: DEQUALINIUM CHLORIDE
     Indication: NASOPHARYNGITIS
     Dosage: UNK UNK, UNKNOWN FREQ.
     Route: 065
  122. TACROLIMUS. [Suspect]
     Active Substance: TACROLIMUS
     Route: 048
     Dates: start: 20100727, end: 20111208
  123. PREDONINE [Suspect]
     Active Substance: PREDNISOLONE
     Route: 048
     Dates: start: 20101116, end: 20110620
  124. HALCION [Concomitant]
     Active Substance: TRIAZOLAM
     Indication: INSOMNIA
     Dosage: 0.125 MG, AS NEEDED
     Route: 048
     Dates: start: 20100406

REACTIONS (17)
  - Influenza [Recovered/Resolved]
  - Gastroenteritis [Recovering/Resolving]
  - Herpes zoster [Recovering/Resolving]
  - Conjunctivitis allergic [Recovered/Resolved]
  - Insomnia [Not Recovered/Not Resolved]
  - Conjunctivitis allergic [Recovering/Resolving]
  - Rhinitis allergic [Recovering/Resolving]
  - Nasopharyngitis [Recovering/Resolving]
  - Iron deficiency anaemia [Recovering/Resolving]
  - Pulmonary hypertension [Recovering/Resolving]
  - Tooth infection [Recovered/Resolved]
  - Herpes zoster [Recovering/Resolving]
  - Cervical dysplasia [Recovering/Resolving]
  - Bronchitis [Recovered/Resolved]
  - Gingivitis [Recovered/Resolved]
  - Insomnia [Recovered/Resolved]
  - Mania [Recovering/Resolving]

NARRATIVE: CASE EVENT DATE: 20070717
